FAERS Safety Report 5827685-7 (Version None)
Quarter: 2008Q3

REPORT INFORMATION
  Report Type: 
  Country: None (occurrence: None)
  Receive Date: 20080728
  Receipt Date: 20080718
  Transmission Date: 20090109
  Serious: Yes (Other)
  Sender: FDA-Public Use
  Company Number: 028-20785-08060962

PATIENT
  Age: 45 Year
  Sex: Female

DRUGS (2)
  1. THALOMID [Suspect]
     Indication: MULTIPLE MYELOMA
     Dosage: 200 MG, DAILY, ORAL
     Route: 048
  2. DECADRON [Concomitant]

REACTIONS (1)
  - URINE HUMAN CHORIONIC GONADOTROPIN ABNORMAL [None]
